FAERS Safety Report 6739981-X (Version None)
Quarter: 2010Q2

REPORT INFORMATION
  Report Type: 
  Country: None (occurrence: None)
  Receive Date: 20100525
  Receipt Date: 20100512
  Transmission Date: 20101027
  Serious: Yes (Hospitalization)
  Sender: FDA-Public Use
  Company Number: DE-ELI_LILLY_AND_COMPANY-DE201005005600

PATIENT
  Sex: Male
  Weight: 51 kg

DRUGS (9)
  1. PEMETREXED [Suspect]
     Indication: NON-SMALL CELL LUNG CANCER
     Dosage: 770 MG, ONE IN 3 WEEKS
     Route: 042
     Dates: start: 20100421
  2. CISPLATIN [Suspect]
     Indication: NON-SMALL CELL LUNG CANCER
     Dosage: 115 MG, ONE IN 3 WEEKS
     Route: 042
     Dates: start: 20100421
  3. OTHER PHARMA COMPANY INV DRUG [Suspect]
     Indication: NON-SMALL CELL LUNG CANCER
     Dosage: 800 MG, TWO IN 3 WEEKS
     Route: 042
     Dates: start: 20100421
  4. NOVALGIN /06276704/ [Concomitant]
     Indication: ABDOMINAL PAIN
     Dates: start: 20091217
  5. SPIRIVA [Concomitant]
     Indication: CHRONIC OBSTRUCTIVE PULMONARY DISEASE
     Dates: start: 20070623
  6. SALBUTAMOL [Concomitant]
     Indication: CHRONIC OBSTRUCTIVE PULMONARY DISEASE
     Dates: start: 20080317
  7. MUCOFALK [Concomitant]
     Indication: DIARRHOEA
     Dates: start: 20080317
  8. FOLSAURE [Concomitant]
     Indication: PREMEDICATION
     Dates: start: 20100412
  9. VITAMIN B-12 [Concomitant]
     Indication: PREMEDICATION
     Dates: start: 20100412

REACTIONS (1)
  - GENERAL PHYSICAL HEALTH DETERIORATION [None]
